FAERS Safety Report 7039181-2 (Version None)
Quarter: 2010Q4

REPORT INFORMATION
  Report Type: 
  Country: None (occurrence: None)
  Receive Date: 20101012
  Receipt Date: 20090911
  Transmission Date: 20110411
  Serious: Yes (Hospitalization, Other)
  Sender: FDA-Public Use
  Company Number: DE-CELGENEUS-062-50794-09020993

PATIENT
  Age: 70 Year
  Sex: Male

DRUGS (2)
  1. VIDAZA [Suspect]
     Route: 058
     Dates: start: 20081101
  2. VIDAZA [Suspect]
     Route: 058
     Dates: start: 20080824

REACTIONS (8)
  - ACUTE GRAFT VERSUS HOST DISEASE [None]
  - CLOSTRIDIAL INFECTION [None]
  - EPILEPSY [None]
  - HERPES VIRUS INFECTION [None]
  - ILEUS PARALYTIC [None]
  - NERVOUS SYSTEM DISORDER [None]
  - PNEUMONIA FUNGAL [None]
  - TOXOPLASMOSIS [None]
